FAERS Safety Report 5905776-X (Version None)
Quarter: 2008Q4

REPORT INFORMATION
  Report Type: 
  Country: None (occurrence: None)
  Receive Date: 20081002
  Receipt Date: 20080926
  Transmission Date: 20090506
  Serious: Yes (Death)
  Sender: FDA-Public Use
  Company Number: A0750152A

PATIENT
  Age: 50 Year
  Sex: Male
  Weight: 115 kg

DRUGS (1)
  1. AVANDIA [Suspect]
     Indication: DIABETES MELLITUS
     Dosage: 4MG PER DAY
     Route: 048
     Dates: start: 20000605, end: 20010701

REACTIONS (2)
  - DEATH [None]
  - MYOCARDIAL INFARCTION [None]
